FAERS Safety Report 7771940-0 (Version None)
Quarter: 2011Q3

REPORT INFORMATION
  Report Type: 
  Country: None (occurrence: None)
  Receive Date: 20110922
  Receipt Date: 20100820
  Transmission Date: 20111222
  Serious: Yes (Life-Threatening)
  Sender: FDA-Public Use
  Company Number: US-ASTRAZENECA-2010SE32728

PATIENT
  Age: 34 Year
  Sex: Male
  Weight: 79.8 kg

DRUGS (10)
  1. SEROQUEL [Suspect]
     Route: 048
     Dates: start: 20080101
  2. SEROQUEL [Suspect]
     Route: 048
     Dates: start: 20080101
  3. SEROQUEL [Suspect]
     Indication: ATTENTION DEFICIT/HYPERACTIVITY DISORDER
     Route: 048
     Dates: start: 19990101, end: 20080101
  4. SEROQUEL [Suspect]
     Indication: DEPRESSION
     Route: 048
     Dates: start: 19990101, end: 20080101
  5. SEROQUEL [Suspect]
     Route: 048
     Dates: start: 20080101
  6. SEROQUEL [Suspect]
     Route: 048
     Dates: start: 20080101
  7. SEROQUEL [Suspect]
     Indication: ANXIETY
     Route: 048
     Dates: start: 19990101, end: 20080101
  8. SEROQUEL [Suspect]
     Route: 048
     Dates: start: 20080101
  9. SEROQUEL [Suspect]
     Indication: INSOMNIA
     Route: 048
     Dates: start: 19990101, end: 20080101
  10. SEROQUEL [Suspect]
     Indication: BIPOLAR DISORDER
     Route: 048
     Dates: start: 19990101, end: 20080101

REACTIONS (6)
  - SUICIDAL IDEATION [None]
  - LOGORRHOEA [None]
  - HALLUCINATION, AUDITORY [None]
  - DRUG DOSE OMISSION [None]
  - MALAISE [None]
  - INSOMNIA [None]
